FAERS Safety Report 5217780-8 (Version None)
Quarter: 2007Q1

REPORT INFORMATION
  Report Type: 
  Country: None (occurrence: None)
  Receive Date: 20061130
  Receipt Date: 20060905
  Transmission Date: 20070707
  Serious: Yes (Hospitalization, Other)
  Sender: FDA-Public Use
  Company Number: US200606003049

PATIENT
  Age: 29 Year
  Sex: Male
  Weight: 129.3 kg

DRUGS (3)
  1. ZYPREXA [Suspect]
     Dosage: SEE IMAGE
     Route: 048
     Dates: start: 20020619, end: 20030924
  2. ARIPIPRAZOLE [Concomitant]
  3. DIVALPROEX SODIUM [Concomitant]

REACTIONS (7)
  - DIABETES MELLITUS [None]
  - DIABETIC COMA [None]
  - DIABETIC KETOACIDOSIS [None]
  - HYPERGLYCAEMIA [None]
  - HYPERGLYCAEMIC HYPEROSMOLAR NONKETOTIC SYNDROME [None]
  - METABOLIC DISORDER [None]
  - OBESITY [None]
